FAERS Safety Report 9813361 (Version 1)
Quarter: 2014Q1

REPORT INFORMATION
  Report Type: Spontaneous
  Country: CA (occurrence: CA)
  Receive Date: 20140113
  Receipt Date: 20140113
  Transmission Date: 20141002
  Serious: Yes (Other)
  Sender: FDA-Public Use
  Company Number: CA-B.I. PHARMACEUTICALS,INC./RIDGEFIELD-2014-BI-01260CN

PATIENT
  Age: 74 Year
  Sex: Male
  Weight: 56 kg

DRUGS (17)
  1. SPIRIVA [Suspect]
     Dosage: 18 MCG
     Route: 055
  2. ADVAIR [Concomitant]
  3. AZITHROMYCIN [Concomitant]
  4. CARDIZEM [Concomitant]
  5. CARDURA [Concomitant]
  6. CEFTIN [Concomitant]
  7. DOCUSATE NOS [Concomitant]
  8. FOLIC ACID [Concomitant]
  9. GLYBURIDE [Concomitant]
  10. K-DUR [Concomitant]
  11. LIPITOR [Concomitant]
  12. METHOTREXATE [Concomitant]
  13. NITROGLYCERIN [Concomitant]
     Dosage: PATCH
  14. PANTOLOC [Concomitant]
     Dosage: FORMULATION: TABLET ENTERIC COATED
  15. PREDNISONE [Concomitant]
  16. SALBUTAMOL [Concomitant]
  17. THEOPHYLLINE [Concomitant]

REACTIONS (1)
  - Parotitis [Unknown]
